FAERS Safety Report 17499090 (Version 2)
Quarter: 2022Q3

REPORT INFORMATION
  Report Type: Spontaneous
  Country: US (occurrence: US)
  Receive Date: 20200305
  Receipt Date: 20220701
  Transmission Date: 20221027
  Serious: Yes (Other)
  Sender: FDA-Public Use
  Company Number: US-SUN PHARMACEUTICAL INDUSTRIES LTD-2020R1-238753

PATIENT
  Age: 45 Year
  Sex: Male

DRUGS (3)
  1. PREDNISONE [Suspect]
     Active Substance: PREDNISONE
     Indication: Mesenteritis
     Dosage: UNK
     Route: 065
  2. PREDNISONE [Suspect]
     Active Substance: PREDNISONE
     Dosage: 12.5 MILLIGRAM, DAILY
     Route: 065
  3. INFLIXIMAB [Suspect]
     Active Substance: INFLIXIMAB
     Indication: Mesenteritis
     Dosage: 5 MILLIGRAM/KILOGRAM/ DOSE PER INFUSION/ 0-2-6 WEEKS
     Route: 065

REACTIONS (6)
  - Off label use [Unknown]
  - Diffuse large B-cell lymphoma [Unknown]
  - Osteoporosis [Unknown]
  - Steatohepatitis [Unknown]
  - Cataract [Unknown]
  - Diabetes mellitus [Unknown]
